FAERS Safety Report 6764346-4 (Version None)
Quarter: 2010Q2

REPORT INFORMATION
  Report Type: 
  Country: None (occurrence: None)
  Receive Date: 20100610
  Receipt Date: 20100531
  Transmission Date: 20101027
  Serious: Yes (Hospitalization)
  Sender: FDA-Public Use
  Company Number: FR-PFIZER INC-2010067774

PATIENT
  Age: 53 Year
  Sex: Female
  Weight: 60 kg

DRUGS (59)
  1. CAMPTOSAR [Suspect]
     Indication: ADENOCARCINOMA
     Dosage: UNK
     Dates: end: 20061001
  2. CAMPTOSAR [Suspect]
     Dosage: 290 MG/M2
     Route: 042
     Dates: start: 20090219, end: 20090219
  3. CAMPTOSAR [Suspect]
     Dosage: 290 MG/M2
     Route: 042
     Dates: start: 20090304, end: 20090304
  4. CAMPTOSAR [Suspect]
     Dosage: 290 MG/M2
     Route: 042
     Dates: start: 20090318, end: 20090318
  5. CAMPTOSAR [Suspect]
     Dosage: 290 MG/M2
     Route: 042
     Dates: start: 20090401, end: 20090401
  6. CAMPTOSAR [Suspect]
     Dosage: 290 MG/M2
     Route: 042
     Dates: start: 20090415, end: 20090415
  7. CAMPTOSAR [Suspect]
     Dosage: 290 MG/M2
     Route: 042
     Dates: start: 20090429, end: 20090429
  8. CAMPTOSAR [Suspect]
     Dosage: 290 MG/M2
     Route: 042
     Dates: start: 20090514, end: 20090514
  9. CAMPTOSAR [Suspect]
     Dosage: 290 MG/M2
     Route: 042
     Dates: start: 20090527, end: 20090527
  10. SOLU-MEDROL [Suspect]
     Indication: VOMITING
     Dosage: 60 MG/M2
     Route: 042
     Dates: start: 20090219, end: 20090219
  11. SOLU-MEDROL [Suspect]
     Dosage: 60 MG/M2
     Route: 042
     Dates: start: 20090304, end: 20090304
  12. SOLU-MEDROL [Suspect]
     Dosage: 60 MG/M2
     Route: 042
     Dates: start: 20090318, end: 20090318
  13. SOLU-MEDROL [Suspect]
     Dosage: 60 MG/M2
     Route: 042
     Dates: start: 20090401, end: 20090401
  14. SOLU-MEDROL [Suspect]
     Dosage: 60 MG/M2
     Route: 042
     Dates: start: 20090415, end: 20090415
  15. SOLU-MEDROL [Suspect]
     Dosage: 60 MG/M2
     Route: 042
     Dates: start: 20090429, end: 20090429
  16. SOLU-MEDROL [Suspect]
     Dosage: 60 MG/M2
     Route: 042
     Dates: start: 20090514, end: 20090514
  17. SOLU-MEDROL [Suspect]
     Dosage: 60 MG/M2
     Route: 042
     Dates: start: 20090527, end: 20090527
  18. AVASTIN [Suspect]
     Indication: ADENOCARCINOMA
     Dosage: UNK
     Dates: end: 20061001
  19. AVASTIN [Suspect]
     Dosage: 300 MG/M2
     Route: 042
     Dates: start: 20090219, end: 20090219
  20. AVASTIN [Suspect]
     Dosage: 300 MG/M2
     Route: 042
     Dates: start: 20090304, end: 20090304
  21. AVASTIN [Suspect]
     Dosage: 300 MG/M2
     Route: 042
     Dates: start: 20090318, end: 20090318
  22. AVASTIN [Suspect]
     Dosage: 300 MG/M2
     Route: 042
     Dates: start: 20090401, end: 20090401
  23. AVASTIN [Suspect]
     Dosage: 300 MG/M2
     Route: 042
     Dates: start: 20090415, end: 20090415
  24. AVASTIN [Suspect]
     Dosage: 300 MG/M2
     Route: 042
     Dates: start: 20090429, end: 20090429
  25. AVASTIN [Suspect]
     Dosage: 300 MG/M2
     Route: 042
     Dates: start: 20090514, end: 20090514
  26. FLUOROURACIL [Suspect]
     Indication: ADENOCARCINOMA
     Dosage: UNK
     Dates: end: 20061001
  27. FLUOROURACIL [Suspect]
     Dosage: 640 MG/M2
     Route: 040
     Dates: start: 20090219, end: 20090219
  28. FLUOROURACIL [Suspect]
     Dosage: 3860 MG/M2
     Route: 041
     Dates: start: 20090219, end: 20090219
  29. FLUOROURACIL [Suspect]
     Dosage: 640 MG/M2
     Route: 040
     Dates: start: 20090304, end: 20090304
  30. FLUOROURACIL [Suspect]
     Dosage: 3860 MG/M2
     Route: 041
     Dates: start: 20090304, end: 20090304
  31. FLUOROURACIL [Suspect]
     Dosage: 640 MG/M2
     Route: 040
     Dates: start: 20090318, end: 20090318
  32. FLUOROURACIL [Suspect]
     Dosage: 3860 MG/M2
     Route: 041
     Dates: start: 20090318, end: 20090318
  33. FLUOROURACIL [Suspect]
     Dosage: 640 MG/M2
     Route: 040
     Dates: start: 20090401, end: 20090401
  34. FLUOROURACIL [Suspect]
     Dosage: 3860 MG/M2
     Route: 041
     Dates: start: 20090401, end: 20090401
  35. FLUOROURACIL [Suspect]
     Dosage: 640 MG/M2
     Route: 040
     Dates: start: 20090415, end: 20090415
  36. FLUOROURACIL [Suspect]
     Dosage: 3860 MG/M2
     Route: 041
     Dates: start: 20090415, end: 20090415
  37. FLUOROURACIL [Suspect]
     Dosage: 640 MG/M2
     Route: 040
     Dates: start: 20090429, end: 20090429
  38. FLUOROURACIL [Suspect]
     Dosage: 3860 MG/M2
     Route: 041
     Dates: start: 20090429, end: 20090429
  39. FLUOROURACIL [Suspect]
     Dosage: 520 MG/M2
     Route: 040
     Dates: start: 20090514, end: 20090514
  40. FLUOROURACIL [Suspect]
     Dosage: 3080 MG/M2
     Route: 041
     Dates: start: 20090514, end: 20090514
  41. FLUOROURACIL [Suspect]
     Dosage: 520 MG/M2
     Route: 040
     Dates: start: 20090527, end: 20090527
  42. FLUOROURACIL [Suspect]
     Dosage: 3080 MG/M2
     Route: 041
     Dates: start: 20090527, end: 20090527
  43. CALCIUM FOLINATE [Suspect]
     Indication: ADENOCARCINOMA
     Dosage: UNK
     Dates: end: 20061001
  44. CALCIUM FOLINATE [Suspect]
     Dosage: 640 MG/M2
     Route: 042
     Dates: start: 20090219, end: 20090219
  45. CALCIUM FOLINATE [Suspect]
     Dosage: 640 MG/M2
     Route: 042
     Dates: start: 20090304, end: 20090304
  46. CALCIUM FOLINATE [Suspect]
     Dosage: 640 MG/M2
     Route: 042
     Dates: start: 20090318, end: 20090318
  47. CALCIUM FOLINATE [Suspect]
     Dosage: 640 MG/M2
     Dates: start: 20090401, end: 20090401
  48. CALCIUM FOLINATE [Suspect]
     Dosage: 640 MG/M2
     Route: 042
     Dates: start: 20090415, end: 20090415
  49. CALCIUM FOLINATE [Suspect]
     Dosage: 640 MG/M2
     Route: 042
     Dates: start: 20090429, end: 20090429
  50. CALCIUM FOLINATE [Suspect]
     Dosage: 520 MG/M2
     Route: 042
     Dates: start: 20090514, end: 20090514
  51. CALCIUM FOLINATE [Suspect]
     Dosage: 520 MG/M2
     Route: 042
     Dates: start: 20090527, end: 20090527
  52. ZOPHREN [Suspect]
     Indication: VOMITING
     Dosage: 8 MG/M2
     Route: 048
     Dates: start: 20090219, end: 20090219
  53. ZOPHREN [Suspect]
     Dosage: 8 MG/M2
     Route: 048
     Dates: start: 20090304, end: 20090304
  54. ZOPHREN [Suspect]
     Dosage: 8 MG/M2
     Route: 048
     Dates: start: 20090318, end: 20090318
  55. ZOPHREN [Suspect]
     Dosage: 8 MG/M2
     Route: 048
     Dates: start: 20090401, end: 20090401
  56. ZOPHREN [Suspect]
     Dosage: 8 MG/M2
     Route: 048
     Dates: start: 20090415, end: 20090415
  57. ZOPHREN [Suspect]
     Dosage: 8 MG/M2
     Route: 048
     Dates: start: 20090429, end: 20090429
  58. ZOPHREN [Suspect]
     Dosage: 8 MG/M2
     Route: 048
     Dates: start: 20090514, end: 20090514
  59. ZOPHREN [Suspect]
     Dosage: 8 MG/M2
     Route: 048
     Dates: start: 20090527, end: 20090527

REACTIONS (1)
  - ERYTHROSIS [None]
